FAERS Safety Report 8942310 (Version 2)
Quarter: 2013Q1

REPORT INFORMATION
  Report Type: Spontaneous
  Country: US (occurrence: None)
  Receive Date: 20121123
  Receipt Date: 20130118
  Transmission Date: 20140127
  Serious: Yes (Disabling)
  Sender: FDA-Public Use
  Company Number: DSA_60901_2012

PATIENT
  Sex: Male
  Weight: 72.58 kg

DRUGS (1)
  1. GRIFULVIN V [Suspect]
     Indication: ONYCHOMYCOSIS
     Route: 048
     Dates: start: 201201, end: 201209

REACTIONS (8)
  - Personality change [None]
  - Agitation [None]
  - Aggression [None]
  - Mental status changes [None]
  - Fatigue [None]
  - Activities of daily living impaired [None]
  - Memory impairment [None]
  - Disturbance in attention [None]
